FAERS Safety Report 8117294-1 (Version None)
Quarter: 2012Q1

REPORT INFORMATION
  Report Type: 
  Country: None (occurrence: None)
  Receive Date: 20120206
  Receipt Date: 20120201
  Transmission Date: 20120608
  Serious: Yes (Hospitalization, Other)
  Sender: FDA-Public Use
  Company Number: US-ABBOTT-11P-163-0873024-00

PATIENT
  Sex: Female
  Weight: 61.29 kg

DRUGS (3)
  1. VITAMIN B-12 [Concomitant]
     Indication: VITAMIN B2 DEFICIENCY
  2. PROTONIX [Concomitant]
     Indication: GASTROOESOPHAGEAL REFLUX DISEASE
  3. HUMIRA [Suspect]
     Indication: CROHN'S DISEASE
     Route: 058
     Dates: start: 20110801

REACTIONS (10)
  - VOMITING [None]
  - INJECTION SITE PAIN [None]
  - HAEMOGLOBIN DECREASED [None]
  - FACIAL PAIN [None]
  - PAIN IN EXTREMITY [None]
  - VISUAL IMPAIRMENT [None]
  - FATIGUE [None]
  - SWELLING FACE [None]
  - OEDEMA PERIPHERAL [None]
  - ANAEMIA [None]
